FAERS Safety Report 11144820 (Version 1)
Quarter: 2015Q2

REPORT INFORMATION
  Report Type: Spontaneous
  Country: US (occurrence: None)
  Receive Date: 20150526
  Receipt Date: 20150526
  Transmission Date: 20150821
  Serious: Yes (Hospitalization)
  Sender: FDA-Public Use
  Company Number: 2015JUB00131

PATIENT
  Age: 2 Year
  Sex: Female

DRUGS (2)
  1. DONEPEZIL (DONEPEZIL) UNKNOWN [Suspect]
     Active Substance: DONEPEZIL
     Route: 048
  2. MEMANTINE [Suspect]
     Active Substance: MEMANTINE
     Route: 048

REACTIONS (3)
  - Toxic encephalopathy [None]
  - Accidental exposure to product by child [None]
  - Accidental overdose [None]
